FAERS Safety Report 4421942-7 (Version None)
Quarter: 2004Q3

REPORT INFORMATION
  Report Type: 
  Country: None (occurrence: None)
  Receive Date: 20040804
  Receipt Date: 20040721
  Transmission Date: 20050211
  Serious: Yes (Life-Threatening)
  Sender: FDA-Public Use
  Company Number: 205611

PATIENT
  Age: 35 Year
  Sex: Male
  Weight: 70 kg

DRUGS (1)
  1. MABTHERA (RITUXIMAB) CONC FOR SOLUTION FOR INFUSION [Suspect]
     Indication: LYMPHOMA
     Dosage: 375 MG/M2, SINGLE, INTRAVENOUS
     Route: 042
     Dates: start: 20030813, end: 20030813

REACTIONS (45)
  - ABSCESS [None]
  - ATELECTASIS [None]
  - ATRIAL FIBRILLATION [None]
  - BACK PAIN [None]
  - BACTERIAL INFECTION [None]
  - BONE MARROW NECROSIS [None]
  - BONE PAIN [None]
  - CARDIOMEGALY [None]
  - CHEST WALL PAIN [None]
  - CHILLS [None]
  - CHROMATURIA [None]
  - DISSEMINATED INTRAVASCULAR COAGULATION [None]
  - DRUG INEFFECTIVE [None]
  - DYSPNOEA [None]
  - ELECTROCARDIOGRAM QT PROLONGED [None]
  - ELECTROCARDIOGRAM T WAVE ABNORMAL [None]
  - EMOTIONAL DISTRESS [None]
  - ERYTHEMA [None]
  - ERYTHROID MATURATION ARREST [None]
  - ESCHERICHIA INFECTION [None]
  - FEBRILE NEUTROPENIA [None]
  - FLUSHING [None]
  - HAEMODIALYSIS [None]
  - HAEMOGLOBIN URINE PRESENT [None]
  - HYPERBILIRUBINAEMIA [None]
  - HYPERHIDROSIS [None]
  - HYPOTENSION [None]
  - HYPOXIA [None]
  - INFECTION [None]
  - INTRAVASCULAR HAEMOLYSIS [None]
  - JAUNDICE [None]
  - LUNG CREPITATION [None]
  - MARROW HYPERPLASIA [None]
  - MYOCARDIAL ISCHAEMIA [None]
  - MYOGLOBIN BLOOD PRESENT [None]
  - NEUTROPENIC SEPSIS [None]
  - NIGHT SWEATS [None]
  - PAIN IN EXTREMITY [None]
  - PANCYTOPENIA [None]
  - PELVIC PAIN [None]
  - PULMONARY CONGESTION [None]
  - PYREXIA [None]
  - RENAL FAILURE ACUTE [None]
  - SCHUMM'S TEST POSITIVE [None]
  - TRANSAMINASES ABNORMAL [None]
